FAERS Safety Report 6808011-3 (Version None)
Quarter: 2010Q2

REPORT INFORMATION
  Report Type: 
  Country: None (occurrence: None)
  Receive Date: 20100629
  Receipt Date: 20090501
  Transmission Date: 20101027
  Serious: No
  Sender: FDA-Public Use
  Company Number: US-PFIZER INC-2009173691

PATIENT
  Sex: Female

DRUGS (2)
  1. MEDROL [Suspect]
     Indication: PAIN IN EXTREMITY
  2. FOSAMAX PLUS D [Concomitant]
     Indication: OSTEOPOROSIS
     Dosage: UNK
     Dates: start: 20080801

REACTIONS (1)
  - DRUG INEFFECTIVE [None]
